FAERS Safety Report 21878087 (Version 1)
Quarter: 2023Q1

REPORT INFORMATION
  Report Type: Spontaneous
  Country: US (occurrence: None)
  Receive Date: 20230117
  Receipt Date: 20230117
  Transmission Date: 20230417
  Serious: No
  Sender: FDA-Public Use
  Company Number: None

PATIENT
  Age: 73 Year
  Sex: Female

DRUGS (1)
  1. BOSENTAN [Suspect]
     Active Substance: BOSENTAN
     Indication: Pulmonary arterial hypertension
     Dosage: 62.5MG TWICE DAILY ORAL
     Route: 048
     Dates: start: 202212

REACTIONS (4)
  - Dyspnoea [None]
  - Somnolence [None]
  - Carbon dioxide increased [None]
  - Therapy cessation [None]

NARRATIVE: CASE EVENT DATE: 20230107
